FAERS Safety Report 24694819 (Version 3)
Quarter: 2025Q1

REPORT INFORMATION
  Report Type: Spontaneous
  Country: FI (occurrence: FI)
  Receive Date: 20241204
  Receipt Date: 20250203
  Transmission Date: 20250408
  Serious: Yes (Hospitalization, Other)
  Sender: ABBVIE
  Company Number: FI-ABBVIE-6029451

PATIENT
  Age: 55 Year
  Sex: Male
  Weight: 77 kg

DRUGS (3)
  1. VENETOCLAX [Suspect]
     Active Substance: VENETOCLAX
     Indication: Chronic lymphocytic leukaemia
     Dosage: 20 MILLIGRAM
     Route: 048
     Dates: start: 20241125, end: 20241125
  2. OBINUTUZUMAB [Concomitant]
     Active Substance: OBINUTUZUMAB
     Indication: Chronic lymphocytic leukaemia
     Dates: start: 202411
  3. Valavir [Concomitant]
     Indication: Antiviral prophylaxis
     Dosage: FORM STRENGTH: 500 MILLIGRAM
     Dates: start: 20241111

REACTIONS (6)
  - Meningitis aseptic [Recovered/Resolved]
  - Pyrexia [Recovered/Resolved]
  - Headache [Recovered/Resolved]
  - CSF test abnormal [Unknown]
  - CSF white blood cell count increased [Unknown]
  - CSF protein increased [Unknown]

NARRATIVE: CASE EVENT DATE: 20241101
